FAERS Safety Report 9684089 (Version 1)
Quarter: 2013Q4

REPORT INFORMATION
  Report Type: Report from Study
  Country: US (occurrence: US)
  Receive Date: 20131112
  Receipt Date: 20131112
  Transmission Date: 20140711
  Serious: Yes (Other)
  Sender: FDA-Public Use
  Company Number: US-JNJFOC-20131101776

PATIENT
  Sex: Male
  Weight: 82.56 kg

DRUGS (4)
  1. INVOKANA [Suspect]
     Indication: TYPE 2 DIABETES MELLITUS
     Route: 048
     Dates: start: 201305, end: 201307
  2. GLYBURIDE [Suspect]
     Indication: TYPE 2 DIABETES MELLITUS
     Route: 048
  3. METFORMIN [Concomitant]
     Indication: TYPE 2 DIABETES MELLITUS
     Route: 048
  4. SIMVASTATIN [Concomitant]
     Indication: BLOOD CHOLESTEROL INCREASED
     Route: 048

REACTIONS (6)
  - Dehydration [Unknown]
  - Laceration [Unknown]
  - Diarrhoea [Recovered/Resolved]
  - Dry mouth [Unknown]
  - Inappropriate schedule of drug administration [Recovered/Resolved]
  - Abnormal loss of weight [Unknown]
